FAERS Safety Report 16482279 (Version 1)
Quarter: 2019Q2

REPORT INFORMATION
  Report Type: Spontaneous
  Country: IT (occurrence: IT)
  Receive Date: 20190627
  Receipt Date: 20190627
  Transmission Date: 20190711
  Serious: Yes (Hospitalization)
  Sender: FDA-Public Use
  Company Number: IT-TEVA-2019-IT-1069701

PATIENT
  Age: 69 Year
  Sex: Female

DRUGS (3)
  1. FERRO ANGELINI [Concomitant]
  2. OMEPRAZOLE. [Concomitant]
     Active Substance: OMEPRAZOLE
  3. PIROXICAM. [Suspect]
     Active Substance: PIROXICAM
     Indication: ARTHRALGIA
     Route: 048
     Dates: start: 20190501, end: 20190511

REACTIONS (2)
  - Mucosal inflammation [Unknown]
  - Weight decreased [Unknown]

NARRATIVE: CASE EVENT DATE: 20190511
